FAERS Safety Report 16861748 (Version 1)
Quarter: 2019Q3

REPORT INFORMATION
  Report Type: Spontaneous
  Country: GB (occurrence: GB)
  Receive Date: 20190927
  Receipt Date: 20190927
  Transmission Date: 20191005
  Serious: Yes (Disabling)
  Sender: FDA-Public Use
  Company Number: GB-TEVA-2019-GB-1113592

PATIENT
  Age: 80 Year
  Sex: Female
  Weight: 75 kg

DRUGS (7)
  1. ZOPICLONE [Concomitant]
     Active Substance: ZOPICLONE
     Dosage: NIGHT 1 DOSAGE FORMS
     Dates: start: 20190711
  2. DONEPEZIL HYDROCHLORIDE. [Concomitant]
     Active Substance: DONEPEZIL HYDROCHLORIDE
     Dosage: 1 DOSAGE FORMS
     Dates: start: 20190529
  3. LORAZEPAM. [Concomitant]
     Active Substance: LORAZEPAM
     Dosage: ONE AM AND ONE 4PM, 2 DOSAGE FORMS
     Dates: start: 20190529
  4. AMITRIPTYLINE HYDROCHLORIDE. [Concomitant]
     Active Substance: AMITRIPTYLINE HYDROCHLORIDE
     Dosage: 1 DOSAGE FORMS
     Dates: start: 20190614, end: 20190712
  5. MEMANTINE. [Suspect]
     Active Substance: MEMANTINE
     Dosage: 5 MG
     Dates: start: 20190902
  6. NITROFURANTOIN. [Concomitant]
     Active Substance: NITROFURANTOIN
     Dosage: 2 DOSAGE FORMS
     Dates: start: 20190708, end: 20190711
  7. COCODAMOL [Concomitant]
     Active Substance: ACETAMINOPHEN\CODEINE PHOSPHATE
     Dosage: 2 DOSAGE FORMS
     Dates: start: 20190723, end: 20190820

REACTIONS (5)
  - Psychomotor hyperactivity [Unknown]
  - Insomnia [Unknown]
  - Behaviour disorder [Unknown]
  - Condition aggravated [Unknown]
  - Agitation [Unknown]

NARRATIVE: CASE EVENT DATE: 20190902
